FAERS Safety Report 6320137-X (Version None)
Quarter: 2009Q3

REPORT INFORMATION
  Report Type: 
  Country: None (occurrence: None)
  Receive Date: 20090822
  Receipt Date: 20081020
  Transmission Date: 20100115
  Serious: No
  Sender: FDA-Public Use
  Company Number: US-ABBOTT-08P-163-0482940-00

PATIENT
  Sex: Female

DRUGS (9)
  1. NIASPAN [Suspect]
     Indication: BLOOD CHOLESTEROL INCREASED
     Route: 048
     Dates: start: 20081013
  2. LORAZEPAM [Concomitant]
     Indication: DRUG USE FOR UNKNOWN INDICATION
  3. LEVOTHYROXINE [Concomitant]
     Indication: DRUG USE FOR UNKNOWN INDICATION
  4. FUROSEMIDE [Concomitant]
     Indication: DRUG USE FOR UNKNOWN INDICATION
  5. PRINZIDE [Concomitant]
     Indication: DRUG USE FOR UNKNOWN INDICATION
  6. ISOSORBIDE DINITRATE [Concomitant]
     Indication: DRUG USE FOR UNKNOWN INDICATION
  7. ASPIRIN [Concomitant]
     Indication: DRUG USE FOR UNKNOWN INDICATION
     Route: 048
  8. LEVOTHYROXINE SODIUM [Concomitant]
     Indication: DRUG USE FOR UNKNOWN INDICATION
  9. TWO OTHER MEDICATIONS (NAMES UNKNOWN) [Concomitant]
     Indication: DRUG USE FOR UNKNOWN INDICATION

REACTIONS (1)
  - PARAESTHESIA [None]
